FAERS Safety Report 7080972-X (Version None)
Quarter: 2010Q4

REPORT INFORMATION
  Report Type: 
  Country: None (occurrence: None)
  Receive Date: 20101103
  Receipt Date: 20101025
  Transmission Date: 20110411
  Serious: Yes (Hospitalization, Other)
  Sender: FDA-Public Use
  Company Number: CA-JNJFOC-20101007857

PATIENT
  Sex: Male
  Weight: 100 kg

DRUGS (8)
  1. REMICADE [Suspect]
     Indication: ANKYLOSING SPONDYLITIS
     Route: 042
  2. DIOVAN HCT [Concomitant]
     Route: 048
  3. PREVACID [Concomitant]
     Route: 048
  4. BISOPROLOL [Concomitant]
     Route: 048
  5. METHOTREXATE [Concomitant]
     Route: 048
  6. FOLIC ACID [Concomitant]
     Route: 048
  7. MULTIVITAMINS DAILY [Concomitant]
     Route: 065
  8. ASPIRIN [Concomitant]
     Route: 048

REACTIONS (1)
  - COLON CANCER [None]
